FAERS Safety Report 4988525-1 (Version None)
Quarter: 2006Q2

REPORT INFORMATION
  Report Type: 
  Country: None (occurrence: None)
  Receive Date: 20060426
  Receipt Date: 20060411
  Transmission Date: 20061013
  Serious: Yes (Death, Other)
  Sender: FDA-Public Use
  Company Number: 2006JP000479

PATIENT
  Age: 61 Year
  Sex: Female

DRUGS (13)
  1. FUNGUARD (MICAFUNGIN) INJECTION [Suspect]
     Indication: PULMONARY MYCOSIS
     Dosage: 300 MG, UID/QD, IV DRIP
     Route: 041
     Dates: start: 20060131, end: 20060228
  2. CEFTAZIDIME [Concomitant]
  3. BENZALIN (NITRAZEPAM) FINE GRANULE [Concomitant]
  4. LASIX (FUROSEMIDE) FINE GRANULE [Concomitant]
  5. LANSOPRAZOLE [Concomitant]
  6. MAGNESIUM OXIDE (MAGNESIUM OXIDE) POWDER [Concomitant]
  7. MEDROL (METHYLPREDNISOLONE) INJECTION [Concomitant]
  8. ADEROXAL (PYRIDOXAL PHOSPHATE) POWDER [Concomitant]
  9. ASPARA K (ASPARTATE POTASSIUM) POWDER [Concomitant]
  10. ISONIAZID (ISONIAZID) POWDER [Concomitant]
  11. ITRIZOLE (ITRACONAZOLE) CAPSULE [Concomitant]
  12. PYDOXAL (PYRIDOXAL PHOSPHATE) [Concomitant]
  13. PREDNISOLONE [Concomitant]

REACTIONS (18)
  - BLOOD BETA-D-GLUCAN INCREASED [None]
  - BRONCHOPULMONARY ASPERGILLOSIS [None]
  - CONDITION AGGRAVATED [None]
  - CONSTIPATION [None]
  - ERYTHEMA [None]
  - HEPATIC FUNCTION ABNORMAL [None]
  - INFUSION SITE EXTRAVASATION [None]
  - INFUSION SITE REACTION [None]
  - LUNG INFECTION PSEUDOMONAL [None]
  - MULTIPLE SCLEROSIS [None]
  - PANCYTOPENIA [None]
  - PNEUMONIA [None]
  - PYREXIA [None]
  - SKIN ULCER [None]
  - SOFT TISSUE NECROSIS [None]
  - SYSTEMIC LUPUS ERYTHEMATOSUS [None]
  - TUBERCULOSIS [None]
  - WEIGHT DECREASED [None]
